FAERS Safety Report 8157353-0 (Version None)
Quarter: 2012Q1

REPORT INFORMATION
  Report Type: 
  Country: None (occurrence: None)
  Receive Date: 20120222
  Receipt Date: 20120120
  Transmission Date: 20120608
  Serious: Yes (Hospitalization)
  Sender: FDA-Public Use
  Company Number: AT-ROCHE-769297

PATIENT
  Sex: Male
  Weight: 85 kg

DRUGS (6)
  1. TAXOTERE [Concomitant]
     Indication: NON-SMALL CELL LUNG CANCER
     Route: 042
     Dates: start: 20100224, end: 20100409
  2. SPIRIVA [Concomitant]
     Indication: CHRONIC OBSTRUCTIVE PULMONARY DISEASE
     Dosage: ROUTE: INHALATIVE
     Route: 055
  3. PANTOPRAZOLE [Concomitant]
     Indication: GASTRITIS
     Route: 048
  4. AVASTIN [Suspect]
     Indication: NON-SMALL CELL LUNG CANCER
     Route: 042
     Dates: start: 20100224, end: 20100409
  5. SYMBICORT [Concomitant]
     Indication: CHRONIC OBSTRUCTIVE PULMONARY DISEASE
     Dosage: ROUTE: INHALATIVE
     Route: 055
  6. UROSIN [Concomitant]
     Indication: HYPERURICAEMIA
     Route: 048

REACTIONS (1)
  - PNEUMOTHORAX [None]
